FAERS Safety Report 6790444-5 (Version None)
Quarter: 2010Q2

REPORT INFORMATION
  Report Type: 
  Country: None (occurrence: None)
  Receive Date: 20100624
  Receipt Date: 20100621
  Transmission Date: 20101027
  Serious: No
  Sender: FDA-Public Use
  Company Number: IE-ROCHE-629222

PATIENT
  Sex: Female
  Weight: 96.3 kg

DRUGS (8)
  1. TRASTUZUMAB [Suspect]
     Indication: BREAST CANCER
     Dosage: LOADING DOSE. FREQUENCY: ONE TIME PER ODOS. ACTUAL DOSE: 732 MG.
     Route: 042
     Dates: start: 20051209, end: 20051209
  2. TRASTUZUMAB [Suspect]
     Dosage: MAINTENANCE DOSE, ACTUAL DOSE GIVEN 549 MG ON 03 JAN, 25 JAN, 13 FEB, 3 MAR AND 24 MAR 2006.
     Route: 042
     Dates: start: 20060103, end: 20060324
  3. LEXAPRO [Suspect]
     Indication: DEPRESSION
     Route: 048
     Dates: start: 20060211, end: 20060325
  4. ELTROXIN [Suspect]
     Indication: DRUG USE FOR UNKNOWN INDICATION
     Route: 048
  5. DOXORUBICIN HCL [Concomitant]
     Indication: BREAST CANCER
  6. CYCLOPHOSPHAMIDE [Concomitant]
     Indication: BREAST CANCER
  7. DOCETAXEL [Concomitant]
     Indication: BREAST CANCER
     Dosage: TAKEN ONCE.
  8. CITALOPRAM [Concomitant]
     Indication: DEPRESSION
     Route: 048
     Dates: start: 20060202, end: 20060211

REACTIONS (1)
  - COMPLICATION OF PREGNANCY [None]
